FAERS Safety Report 5728319-2 (Version None)
Quarter: 2008Q2

REPORT INFORMATION
  Report Type: 
  Country: None (occurrence: None)
  Receive Date: 20080502
  Receipt Date: 20080502
  Transmission Date: 20081010
  Serious: Yes (Other)
  Sender: FDA-Public Use
  Company Number: None

PATIENT
  Age: 54 Year
  Sex: Male
  Weight: 81.6475 kg

DRUGS (2)
  1. ZOCOR [Suspect]
     Indication: BLOOD CHOLESTEROL INCREASED
     Dosage: 1 PILL ONCE PER DAY PO
     Route: 048
     Dates: start: 20070715, end: 20071012
  2. ZOCOR [Suspect]
     Indication: LIPIDS INCREASED
     Dosage: 1 PILL ONCE PER DAY PO
     Route: 048
     Dates: start: 20070715, end: 20071012

REACTIONS (9)
  - ASTHENIA [None]
  - DYSGRAPHIA [None]
  - FEELING ABNORMAL [None]
  - FINE MOTOR DELAY [None]
  - HYPOKINESIA [None]
  - MYALGIA [None]
  - PHARYNGOLARYNGEAL PAIN [None]
  - TREMOR [None]
  - VOMITING [None]
